FAERS Safety Report 9491936 (Version 1)
Quarter: 2013Q3

REPORT INFORMATION
  Report Type: Spontaneous
  Country: US (occurrence: US)
  Receive Date: 20130830
  Receipt Date: 20130830
  Transmission Date: 20140515
  Serious: Yes (Hospitalization)
  Sender: FDA-Public Use
  Company Number: US-PFIZER INC-2013246858

PATIENT
  Age: 63 Year
  Sex: Male
  Weight: 81.63 kg

DRUGS (6)
  1. EPIPEN [Suspect]
     Indication: ALLERGY TO ARTHROPOD STING
     Dosage: 0.3 MG, AS NEEDED
     Route: 065
     Dates: start: 2011
  2. METFORMIN [Concomitant]
     Indication: DIABETES MELLITUS
     Dosage: 500 MG, UNK
     Route: 048
     Dates: start: 2008
  3. LISINOPRIL [Concomitant]
     Indication: HYPERTENSION
     Dosage: UNK
     Route: 048
     Dates: start: 2008
  4. GABAPENTIN [Concomitant]
     Indication: RESTLESS LEGS SYNDROME
     Dosage: HS
     Route: 048
     Dates: start: 2008
  5. TRAZODONE [Concomitant]
     Indication: SLEEP DISORDER
     Dosage: HS
     Route: 048
     Dates: start: 2008
  6. BENADRYL [Concomitant]
     Dosage: 25 MGX1 APPROX {1 MIN

REACTIONS (1)
  - Drug ineffective [Recovered/Resolved]
